FAERS Safety Report 6117291-1 (Version None)
Quarter: 2009Q1

REPORT INFORMATION
  Report Type: 
  Country: None (occurrence: None)
  Receive Date: 20090314
  Receipt Date: 20090112
  Transmission Date: 20090719
  Serious: No
  Sender: FDA-Public Use
  Company Number: US-ABBOTT-09P-163-0497404-00

PATIENT
  Sex: Female

DRUGS (8)
  1. HUMIRA [Suspect]
     Indication: PSORIASIS
     Route: 058
     Dates: start: 20081212, end: 20090109
  2. ASPIRIN [Concomitant]
     Indication: CARDIAC DISORDER
     Route: 048
  3. LISINOPRIL AND HYDROCHLOROTHIAZIDE [Concomitant]
     Indication: HYPERTENSION
     Dosage: FORM:  20/12.5  2TABS DAILY  UNIT:  40/25MG
     Route: 048
  4. METFORMIN HCL [Concomitant]
     Indication: GLUCOSE TOLERANCE IMPAIRED
     Dosage: BID
     Route: 048
  5. PRAVASTATIN [Concomitant]
     Indication: BLOOD CHOLESTEROL INCREASED
     Route: 048
  6. CLIMARA [Concomitant]
     Indication: HORMONE REPLACEMENT THERAPY
     Dosage: WEEKLY
     Route: 062
  7. FLUOXETINE [Concomitant]
     Indication: DEPRESSION
     Route: 048
  8. MULTI-VITAMIN [Concomitant]
     Indication: VITAMIN SUPPLEMENTATION
     Route: 048

REACTIONS (5)
  - HYPERSENSITIVITY [None]
  - INFLAMMATION [None]
  - PHOTOSENSITIVITY REACTION [None]
  - PRURITUS [None]
  - SYSTEMIC LUPUS ERYTHEMATOSUS RASH [None]
